FAERS Safety Report 18724258 (Version 1)
Quarter: 2021Q1

REPORT INFORMATION
  Report Type: Spontaneous
  Country: US (occurrence: US)
  Receive Date: 20210109
  Receipt Date: 20210109
  Transmission Date: 20210419
  Serious: Yes (Other)
  Sender: FDA-Public Use
  Company Number: None

PATIENT
  Age: 27 Year
  Sex: Female
  Weight: 52.65 kg

DRUGS (1)
  1. ESCITALOPRAM [Suspect]
     Active Substance: ESCITALOPRAM OXALATE
     Indication: ANXIETY

REACTIONS (4)
  - Adverse drug reaction [None]
  - Muscle spasms [None]
  - Ovarian cyst ruptured [None]
  - Dermal cyst [None]

NARRATIVE: CASE EVENT DATE: 20201211
